FAERS Safety Report 20709254 (Version 2)
Quarter: 2022Q2

REPORT INFORMATION
  Report Type: Report from Study
  Country: JP (occurrence: JP)
  Receive Date: 20220414
  Receipt Date: 20220527
  Transmission Date: 20220721
  Serious: Yes (Hospitalization, Other)
  Sender: FDA-Public Use
  Company Number: JP-ViiV Healthcare Limited-A20052139

PATIENT
  Age: 36 Year
  Sex: Male

DRUGS (14)
  1. LAMIVUDINE [Suspect]
     Active Substance: LAMIVUDINE
     Indication: HIV infection
     Dosage: 150 MG, BID
     Route: 048
     Dates: start: 19980814, end: 19991031
  2. LAMIVUDINE [Suspect]
     Active Substance: LAMIVUDINE
     Dosage: 300 MG, UNK
     Route: 048
     Dates: start: 19991101, end: 20030331
  3. LAMIVUDINE [Suspect]
     Active Substance: LAMIVUDINE
     Dosage: 150 MG, BID
     Route: 048
     Dates: start: 20030401, end: 20040116
  4. LAMIVUDINE [Suspect]
     Active Substance: LAMIVUDINE
     Dosage: 300 MG, QD
     Route: 048
     Dates: start: 20040117, end: 20090707
  5. TIVICAY [Suspect]
     Active Substance: DOLUTEGRAVIR SODIUM
     Indication: HIV infection
     Dosage: 50 MG, 1D
     Route: 048
     Dates: start: 20140621, end: 20171215
  6. ABACAVIR SULFATE\DOLUTEGRAVIR SODIUM\LAMIVUDINE [Suspect]
     Active Substance: ABACAVIR SULFATE\DOLUTEGRAVIR SODIUM\LAMIVUDINE
     Indication: HIV infection
     Dosage: 1 DF, 1D
     Route: 048
     Dates: start: 20171216
  7. ZERIT [Suspect]
     Active Substance: STAVUDINE
     Indication: HIV infection
     Dosage: 40 MG, BID
     Route: 048
     Dates: start: 19980814, end: 19991031
  8. ZERIT [Suspect]
     Active Substance: STAVUDINE
     Dosage: 80 MG, 1D
     Route: 048
     Dates: start: 19991101, end: 20040711
  9. REYATAZ [Suspect]
     Active Substance: ATAZANAVIR SULFATE
     Indication: HIV infection
     Dosage: 400 MG, UNK
     Route: 048
     Dates: start: 20040117, end: 20040711
  10. REYATAZ [Suspect]
     Active Substance: ATAZANAVIR SULFATE
     Dosage: 300 MG, UNK
     Route: 048
     Dates: start: 20040712, end: 20090707
  11. DESCOVY [Suspect]
     Active Substance: EMTRICITABINE\TENOFOVIR ALAFENAMIDE FUMARATE
     Indication: HIV infection
     Dosage: 1 DF, 1D
     Route: 048
     Dates: start: 20170204, end: 20171215
  12. VIRACEPT [Concomitant]
     Active Substance: NELFINAVIR MESYLATE
     Indication: HIV infection
     Dosage: 1250 MG, BID
     Dates: start: 19980814, end: 19991031
  13. VIRACEPT [Concomitant]
     Active Substance: NELFINAVIR MESYLATE
     Dosage: 2500 MG, UNK
     Dates: start: 19991101, end: 20040116
  14. ADVATE [Concomitant]
     Active Substance: ANTIHEMOPHILIC FACTOR, HUMAN RECOMBINANT
     Dosage: UNK
     Dates: start: 20170401

REACTIONS (5)
  - Protein urine present [Not Recovered/Not Resolved]
  - Hyperbilirubinaemia [Not Recovered/Not Resolved]
  - Diarrhoea [Unknown]
  - Diarrhoea [Unknown]
  - Trismus [Recovering/Resolving]

NARRATIVE: CASE EVENT DATE: 20040220
